FAERS Safety Report 12636839 (Version 3)
Quarter: 2016Q4

REPORT INFORMATION
  Report Type: Spontaneous
  Country: CA (occurrence: CA)
  Receive Date: 20160809
  Receipt Date: 20161014
  Transmission Date: 20170207
  Serious: Yes (Hospitalization, Other)
  Sender: FDA-Public Use
  Company Number: CA-PFIZER INC-2016368523

PATIENT
  Age: 18 Year
  Sex: Female

DRUGS (1)
  1. RAPAMUNE [Suspect]
     Active Substance: SIROLIMUS
     Indication: AUTOIMMUNE LYMPHOPROLIFERATIVE SYNDROME
     Dosage: 3 MG, DAILY
     Dates: start: 20160628, end: 20160722

REACTIONS (3)
  - Splenectomy [Unknown]
  - General physical health deterioration [Not Recovered/Not Resolved]
  - Drug ineffective for unapproved indication [Unknown]
